FAERS Safety Report 24271125 (Version 2)
Quarter: 2024Q4

REPORT INFORMATION
  Report Type: Spontaneous
  Country: US (occurrence: US)
  Receive Date: 20240831
  Receipt Date: 20241004
  Transmission Date: 20250115
  Serious: No
  Sender: AMGEN
  Company Number: US-AMGEN-USASP2024173407

PATIENT
  Age: 52 Year
  Sex: Female

DRUGS (1)
  1. TEPEZZA [Suspect]
     Active Substance: TEPROTUMUMAB-TRBW
     Indication: Endocrine ophthalmopathy
     Dosage: 1 DOSAGE FORM, Q3WK  (1X Q3WKS FOR 8 INFUSIONS )
     Route: 042
     Dates: start: 20240621

REACTIONS (3)
  - Headache [Unknown]
  - Muscle spasms [Unknown]
  - Nail avulsion [Unknown]
